FAERS Safety Report 5723278-0 (Version None)
Quarter: 2008Q2

REPORT INFORMATION
  Report Type: 
  Country: None (occurrence: None)
  Receive Date: 20080430
  Receipt Date: 20080221
  Transmission Date: 20081010
  Serious: No
  Sender: FDA-Public Use
  Company Number: US-ASTRAZENECA-2008UW03689

PATIENT
  Age: 79 Year
  Sex: Female
  Weight: 61.7 kg

DRUGS (9)
  1. NEXIUM [Suspect]
     Indication: OESOPHAGEAL DISORDER
     Route: 048
     Dates: start: 20071201
  2. ASTELIN [Concomitant]
  3. ALBUTEROL [Concomitant]
  4. PLAVIX [Concomitant]
  5. SINGULAIR [Concomitant]
  6. FISH OIL [Concomitant]
  7. ZOCOR [Concomitant]
  8. MICARDIS [Concomitant]
  9. DOXYCYCLINE [Concomitant]

REACTIONS (2)
  - DRUG INEFFECTIVE [None]
  - DYSPHONIA [None]
